FAERS Safety Report 15172871 (Version 1)
Quarter: 2018Q3

REPORT INFORMATION
  Report Type: Spontaneous
  Country: US (occurrence: US)
  Receive Date: 20180720
  Receipt Date: 20180720
  Transmission Date: 20181010
  Serious: No
  Sender: FDA-Public Use
  Company Number: US-ROCHE-2122115

PATIENT
  Age: 51 Year
  Sex: Male

DRUGS (8)
  1. IRINOTECAN [Concomitant]
     Active Substance: IRINOTECAN
  2. PERTUZUMAB. [Suspect]
     Active Substance: PERTUZUMAB
     Indication: RECTAL CANCER METASTATIC
     Route: 065
  3. TRASTUZUMAB. [Suspect]
     Active Substance: TRASTUZUMAB
     Indication: RECTAL CANCER METASTATIC
     Route: 042
  4. 5?FLUOROURACIL [Concomitant]
     Active Substance: FLUOROURACIL
  5. LAPATINIB [Suspect]
     Active Substance: LAPATINIB
     Indication: RECTAL CANCER METASTATIC
     Route: 048
  6. OXALIPLATIN. [Concomitant]
     Active Substance: OXALIPLATIN
  7. CETUXIMAB. [Concomitant]
     Active Substance: CETUXIMAB
  8. FLOXURIDINE. [Concomitant]
     Active Substance: FLOXURIDINE

REACTIONS (3)
  - Drug resistance [Unknown]
  - Off label use [Unknown]
  - Intentional product use issue [Unknown]
